FAERS Safety Report 11213678 (Version 1)
Quarter: 2015Q2

REPORT INFORMATION
  Report Type: Spontaneous
  Country: IT (occurrence: IT)
  Receive Date: 20150623
  Receipt Date: 20150623
  Transmission Date: 20150821
  Serious: Yes (Other)
  Sender: FDA-Public Use
  Company Number: IT-MYLANLABS-2015M1020610

PATIENT

DRUGS (3)
  1. LIDOCAINE. [Suspect]
     Active Substance: LIDOCAINE
     Indication: SEIZURE
     Dosage: 6 MG/KG
     Route: 040
  2. LIDOCAINE. [Suspect]
     Active Substance: LIDOCAINE
     Dosage: 6 MG/KG/H FOR 18 HOURS
     Route: 041
  3. LIDOCAINE. [Suspect]
     Active Substance: LIDOCAINE
     Dosage: 4 MG/KG/H FOR 12 HOURS
     Route: 041

REACTIONS (1)
  - Cardiotoxicity [Recovered/Resolved]
